FAERS Safety Report 16341690 (Version 1)
Quarter: 2019Q2

REPORT INFORMATION
  Report Type: Spontaneous
  Country: DE (occurrence: DE)
  Receive Date: 20190522
  Receipt Date: 20190522
  Transmission Date: 20190711
  Serious: Yes (Other)
  Sender: FDA-Public Use
  Company Number: DE-TEVA-2019-DE-1052229

PATIENT
  Age: 77 Year
  Sex: Female

DRUGS (2)
  1. METFORMIN [Suspect]
     Active Substance: METFORMIN HYDROCHLORIDE
     Indication: DIABETES MELLITUS
     Dosage: 425 MILLIGRAM DAILY;
     Route: 048
     Dates: start: 2012, end: 20190513
  2. KREON [Concomitant]
     Active Substance: PANCRELIPASE
     Dosage: .5 DOSAGE FORMS DAILY;
     Route: 065

REACTIONS (3)
  - Pancreatic duct obstruction [Not Recovered/Not Resolved]
  - Abdominal pain upper [Unknown]
  - Pancreatic disorder [Not Recovered/Not Resolved]
